FAERS Safety Report 5279943-5 (Version None)
Quarter: 2007Q1

REPORT INFORMATION
  Report Type: 
  Country: None (occurrence: None)
  Receive Date: 20070327
  Receipt Date: 20070327
  Transmission Date: 20070707
  Serious: Yes (Death)
  Sender: FDA-Public Use
  Company Number: None

PATIENT
  Age: 47 Year
  Sex: Male
  Weight: 81.6475 kg

DRUGS (6)
  1. ZYPREXA [Suspect]
     Indication: DEPRESSION
     Dates: start: 20041013, end: 20041020
  2. ZYPREXA [Suspect]
     Indication: DRUG DEPENDENCE
     Dates: start: 20041013, end: 20041020
  3. DEPAKOTE [Suspect]
     Indication: DEPRESSION
     Dates: start: 20041013, end: 20041020
  4. DEPAKOTE [Suspect]
     Indication: DRUG DEPENDENCE
     Dates: start: 20041013, end: 20041020
  5. METHADONE HCL [Suspect]
     Indication: DEPRESSION
     Dates: start: 20041013, end: 20041020
  6. METHADONE HCL [Suspect]
     Indication: DRUG DEPENDENCE
     Dates: start: 20041013, end: 20041020

REACTIONS (5)
  - ALCOHOLISM [None]
  - DRUG ABUSER [None]
  - DRUG INTERACTION [None]
  - PULMONARY CONGESTION [None]
  - PULMONARY OEDEMA [None]
